FAERS Safety Report 18223072 (Version 2)
Quarter: 2020Q3

REPORT INFORMATION
  Report Type: Spontaneous
  Country: US (occurrence: US)
  Receive Date: 20200902
  Receipt Date: 20200908
  Transmission Date: 20201103
  Serious: Yes (Other)
  Sender: FDA-Public Use
  Company Number: US-MALLINCKRODT-T202004121

PATIENT
  Sex: Male
  Weight: 1 kg

DRUGS (3)
  1. H.P. ACTHAR [Suspect]
     Active Substance: CORTICOTROPIN
     Dosage: 70 UNITS ONCE PER DAY
     Route: 065
     Dates: start: 202008, end: 202008
  2. H.P. ACTHAR [Suspect]
     Active Substance: CORTICOTROPIN
     Indication: INFANTILE SPASMS
     Dosage: 60 UNITS, ONCE DAILY
     Route: 065
     Dates: start: 20200805, end: 202008
  3. H.P. ACTHAR [Suspect]
     Active Substance: CORTICOTROPIN
     Dosage: 60 UNITS, ONCE DAILY
     Route: 030
     Dates: start: 202008

REACTIONS (4)
  - Condition aggravated [Unknown]
  - Infantile spasms [Unknown]
  - Weight increased [Unknown]
  - Therapeutic product effect incomplete [Unknown]

NARRATIVE: CASE EVENT DATE: 2020
